FAERS Safety Report 15632249 (Version 3)
Quarter: 2018Q4

REPORT INFORMATION
  Report Type: Spontaneous
  Country: US (occurrence: US)
  Receive Date: 20181119
  Receipt Date: 20181221
  Transmission Date: 20190205
  Serious: Yes (Other)
  Sender: FDA-Public Use
  Company Number: US-BAYER-2018-211120

PATIENT
  Age: 61 Year
  Sex: Female

DRUGS (1)
  1. BETASERON [Suspect]
     Active Substance: INTERFERON BETA-1B
     Indication: MULTIPLE SCLEROSIS
     Dosage: 1 ML, UNK

REACTIONS (13)
  - Joint swelling [None]
  - Fatigue [None]
  - Back pain [None]
  - Depressed mood [Not Recovered/Not Resolved]
  - Anhedonia [Not Recovered/Not Resolved]
  - Paraesthesia [None]
  - Depression [Not Recovered/Not Resolved]
  - Upper respiratory tract infection [None]
  - Vertigo [None]
  - Mobility decreased [None]
  - Crohn^s disease [None]
  - Decreased interest [Not Recovered/Not Resolved]
  - Insomnia [None]

NARRATIVE: CASE EVENT DATE: 201808
